FAERS Safety Report 5950819-0 (Version None)
Quarter: 2008Q4

REPORT INFORMATION
  Report Type: 
  Country: None (occurrence: None)
  Receive Date: 20081112
  Receipt Date: 20081111
  Transmission Date: 20090506
  Serious: Yes (Death, Life-Threatening, Hospitalization, Other)
  Sender: FDA-Public Use
  Company Number: GR-RB-006118-08

PATIENT
  Age: 47 Year
  Sex: Male

DRUGS (2)
  1. SUBUTEX [Suspect]
     Dosage: 50 MG PER WEEK
     Route: 065
     Dates: start: 20040308, end: 20081020
  2. HEROIN [Suspect]
     Indication: DRUG USE FOR UNKNOWN INDICATION
     Dosage: AMOUNT AND FREQUENCY UNKNOWN.
     Route: 065

REACTIONS (4)
  - CEREBRAL HAEMORRHAGE [None]
  - CHRONIC MYELOMONOCYTIC LEUKAEMIA [None]
  - LEUKAEMIA [None]
  - SUBSTANCE ABUSE [None]
